FAERS Safety Report 7002270-2 (Version None)
Quarter: 2010Q3

REPORT INFORMATION
  Report Type: 
  Country: None (occurrence: None)
  Receive Date: 20100920
  Receipt Date: 20090807
  Transmission Date: 20110219
  Serious: Yes (Hospitalization)
  Sender: FDA-Public Use
  Company Number: US-ASTRAZENECA-2009SE07147

PATIENT
  Age: 43 Year
  Sex: Female

DRUGS (8)
  1. QUETIAPINE [Suspect]
     Dosage: DOSE REDUCED FROM 300 MG TO 100 MG
  2. QUETIAPINE [Suspect]
     Dosage: DOSE TAPERED OFF FROM 100 MG
  3. SUBUTEX [Concomitant]
  4. SUBUTEX [Concomitant]
     Dosage: DRUG WAS RESTARTED AFTER DISCHARGE
  5. HYDROCHLOROTHIAZIDE [Concomitant]
  6. FUROSEMIDE [Concomitant]
  7. SERTRALINE HYDROCHLORIDE [Concomitant]
  8. DILANTIN [Concomitant]

REACTIONS (1)
  - OEDEMA PERIPHERAL [None]
